FAERS Safety Report 17217167 (Version 2)
Quarter: 2021Q1

REPORT INFORMATION
  Report Type: Report from Study
  Country: None (occurrence: AR)
  Receive Date: 20191231
  Receipt Date: 20210115
  Transmission Date: 20210419
  Serious: Yes (Other)
  Sender: FDA-Public Use
  Company Number: AR-ABBVIE-19K-007-3215240-00

PATIENT
  Age: 63 Year
  Sex: Female

DRUGS (1)
  1. HUMIRA [Suspect]
     Active Substance: ADALIMUMAB
     Indication: RHEUMATOID ARTHRITIS
     Route: 058
     Dates: start: 20111229

REACTIONS (6)
  - Spinal pain [Not Recovered/Not Resolved]
  - Neuropathy peripheral [Unknown]
  - Medical device site pain [Unknown]
  - Intervertebral disc displacement [Unknown]
  - Pain [Unknown]
  - Device dislocation [Unknown]

NARRATIVE: CASE EVENT DATE: 202007
